FAERS Safety Report 5738145-6 (Version None)
Quarter: 2008Q2

REPORT INFORMATION
  Report Type: 
  Country: None (occurrence: None)
  Receive Date: 20080509
  Receipt Date: 20080122
  Transmission Date: 20081010
  Serious: Yes (Other)
  Sender: FDA-Public Use
  Company Number: PHEH2008US01102

PATIENT
  Age: 29 Year
  Sex: Female
  Weight: 72.6 kg

DRUGS (4)
  1. TEGRETOL [Suspect]
     Indication: CONVULSION
     Dates: start: 20080109
  2. TOPAMAX [Suspect]
     Indication: CONVULSION
     Dosage: 25 MG, QD
     Dates: start: 20080110
  3. DILANTIN /AUS/(PHENYTOIN SODIUM) [Concomitant]
  4. HYDROCODONE (HYDROCODONE) [Concomitant]

REACTIONS (3)
  - DYSARTHRIA [None]
  - THERAPEUTIC RESPONSE DECREASED [None]
  - TREMOR [None]
